FAERS Safety Report 4544823-7 (Version None)
Quarter: 2005Q1

REPORT INFORMATION
  Report Type: 
  Country: None (occurrence: None)
  Receive Date: 20050104
  Receipt Date: 20041222
  Transmission Date: 20050727
  Serious: Yes (Hospitalization)
  Sender: FDA-Public Use
  Company Number: 2004SE07187

PATIENT
  Age: 70 Year
  Sex: Male

DRUGS (7)
  1. LUCEN [Suspect]
     Indication: PROPHYLAXIS
     Dosage: 20 MG DAILY PO
     Route: 048
     Dates: start: 20040630, end: 20041215
  2. DELTACORTENE [Concomitant]
  3. BACTRIM [Concomitant]
  4. LASIX [Concomitant]
  5. OMNIC [Concomitant]
  6. TICLID [Concomitant]
  7. NEORECORMON [Concomitant]

REACTIONS (2)
  - DYSGEUSIA [None]
  - SALIVARY HYPERSECRETION [None]
